FAERS Safety Report 6856478-7 (Version None)
Quarter: 2010Q2

REPORT INFORMATION
  Report Type: 
  Country: None (occurrence: None)
  Receive Date: 20100630
  Receipt Date: 20100302
  Transmission Date: 20101027
  Serious: No
  Sender: FDA-Public Use
  Company Number: 1000012218

PATIENT
  Age: 63 Year
  Sex: Female

DRUGS (7)
  1. BYSTOLIC [Suspect]
     Indication: HYPERTENSION
     Dosage: 2.5 MG (2.5 MG, 1 IN 1 D), ORAL
     Route: 048
     Dates: start: 20091208, end: 20100206
  2. LASIX [Concomitant]
  3. JANUVIA [Concomitant]
  4. LIPITOR [Concomitant]
  5. NEPHROCAPS [Concomitant]
  6. VITAMIN D [Concomitant]
  7. VITAMIN TAB [Concomitant]

REACTIONS (5)
  - BLOOD PARATHYROID HORMONE INCREASED [None]
  - CHILLS [None]
  - NECK PAIN [None]
  - PALPITATIONS [None]
  - TREMOR [None]
